FAERS Safety Report 4591022-9 (Version None)
Quarter: 2005Q1

REPORT INFORMATION
  Report Type: 
  Country: None (occurrence: None)
  Receive Date: 20050222
  Receipt Date: 20050222
  Transmission Date: 20050727
  Serious: Yes (Hospitalization)
  Sender: FDA-Public Use
  Company Number: None

PATIENT
  Age: 20 Month
  Sex: Male
  Weight: 11.6 kg

DRUGS (4)
  1. HEPARIN [Suspect]
  2. SALINE       MEDESIL INC [Suspect]
  3. ZOSYN [Concomitant]
  4. GENTAMICIN [Concomitant]

REACTIONS (3)
  - BACTERIAL INFECTION [None]
  - CENTRAL LINE INFECTION [None]
  - PSEUDOMONAS INFECTION [None]
